FAERS Safety Report 9640659 (Version 1)
Quarter: 2013Q4

REPORT INFORMATION
  Report Type: Report from Study
  Country: US (occurrence: US)
  Receive Date: 20131023
  Receipt Date: 20131023
  Transmission Date: 20140711
  Serious: No
  Sender: FDA-Public Use
  Company Number: US-ABBVIE-13P-163-1082861-00

PATIENT
  Age: 32 Year
  Sex: Female

DRUGS (4)
  1. LUPRON DEPOT [Suspect]
     Indication: ENDOMETRIOSIS
     Dosage: ONE INJECTION RECEIVED SO FAR
     Route: 030
     Dates: start: 201304
  2. SIMVASTATIN [Concomitant]
     Indication: PRODUCT USED FOR UNKNOWN INDICATION
  3. ZOLOFT [Concomitant]
     Indication: PRODUCT USED FOR UNKNOWN INDICATION
  4. NORTREL [Concomitant]
     Indication: CONTRACEPTION
     Dosage: 1/35

REACTIONS (4)
  - Constipation [Not Recovered/Not Resolved]
  - Acne [Not Recovered/Not Resolved]
  - Thirst [Not Recovered/Not Resolved]
  - Menstrual disorder [Not Recovered/Not Resolved]
